FAERS Safety Report 10034224 (Version 1)
Quarter: 2014Q1

REPORT INFORMATION
  Report Type: Spontaneous
  Country: US (occurrence: None)
  Receive Date: 20140324
  Receipt Date: 20140324
  Transmission Date: 20141002
  Serious: Yes (Hospitalization)
  Sender: FDA-Public Use
  Company Number: None

PATIENT
  Age: 68 Year
  Sex: Female

DRUGS (10)
  1. GLEEVEC [Suspect]
     Route: 048
     Dates: start: 20130406
  2. LISISNORPIL [Concomitant]
  3. SIMVASTATIN [Concomitant]
  4. POTASSIUM [Concomitant]
  5. FUROSEMIDE [Concomitant]
  6. NIACIN [Concomitant]
  7. CALCIUM [Concomitant]
  8. VITAMIN [Concomitant]
  9. PREDNISONE [Concomitant]
  10. PLAVIX [Concomitant]

REACTIONS (1)
  - Cerebrovascular accident [None]
